FAERS Safety Report 24109990 (Version 4)
Quarter: 2024Q4

REPORT INFORMATION
  Report Type: Spontaneous
  Country: US (occurrence: US)
  Receive Date: 20240718
  Receipt Date: 20241125
  Transmission Date: 20250114
  Serious: Yes (Other)
  Sender: CSL BEHRING
  Company Number: US-BEH-2024175720

PATIENT
  Sex: Male

DRUGS (2)
  1. IDELVION [Suspect]
     Active Substance: COAGULATION FACTOR IX RECOMBINANT HUMAN
     Indication: Factor IX deficiency
     Dosage: 4000 IU, QW
     Route: 042
     Dates: start: 202401
  2. IDELVION [Suspect]
     Active Substance: COAGULATION FACTOR IX RECOMBINANT HUMAN
     Indication: Factor IX deficiency
     Dosage: 4000 IU, QW
     Route: 042
     Dates: start: 202401

REACTIONS (8)
  - Haemarthrosis [Unknown]
  - Haemarthrosis [Unknown]
  - Wrist surgery [Unknown]
  - Limb injury [Unknown]
  - Limb injury [Unknown]
  - Haemorrhage [Unknown]
  - Bone fragmentation [Unknown]
  - Gingival bleeding [Unknown]
